FAERS Safety Report 6248812-6 (Version None)
Quarter: 2009Q2

REPORT INFORMATION
  Report Type: 
  Country: None (occurrence: None)
  Receive Date: 20090629
  Receipt Date: 20090622
  Transmission Date: 20091009
  Serious: Yes (Hospitalization)
  Sender: FDA-Public Use
  Company Number: CA-ASTRAZENECA-2009UW16757

PATIENT
  Sex: Male

DRUGS (9)
  1. CRESTOR [Suspect]
     Route: 048
     Dates: start: 20060101
  2. SYMBICORT [Concomitant]
     Route: 055
     Dates: start: 20090401
  3. ASPIRIN [Concomitant]
  4. CELEBREX [Concomitant]
  5. DILANTIN [Concomitant]
  6. PANTOPRAZOLE SODIUM [Concomitant]
  7. QUININE [Concomitant]
  8. PREDNISONE TAB [Concomitant]
  9. METOPROLOL SUCCINATE [Concomitant]

REACTIONS (5)
  - BILE DUCT STONE [None]
  - DYSGEUSIA [None]
  - DYSPHONIA [None]
  - HEART RATE INCREASED [None]
  - PAIN [None]
